FAERS Safety Report 5802689-9 (Version None)
Quarter: 2008Q3

REPORT INFORMATION
  Report Type: 
  Country: None (occurrence: None)
  Receive Date: 20080703
  Receipt Date: 20080625
  Transmission Date: 20090109
  Serious: Yes (Other)
  Sender: FDA-Public Use
  Company Number: 056-20785-08061156

PATIENT
  Age: 43 Year
  Sex: Male

DRUGS (1)
  1. THALIDOMIDE [Suspect]
     Indication: CUTANEOUS LUPUS ERYTHEMATOSUS
     Dosage: 100 MG, DAILY; 50 MG, THREE TIMES A WEEK

REACTIONS (2)
  - ASPERGILLOSIS [None]
  - INTERVERTEBRAL DISCITIS [None]
